FAERS Safety Report 16084613 (Version 1)
Quarter: 2019Q1

REPORT INFORMATION
  Report Type: Spontaneous
  Country: CN (occurrence: CN)
  Receive Date: 20190318
  Receipt Date: 20190318
  Transmission Date: 20190418
  Serious: Yes (Other)
  Sender: FDA-Public Use
  Company Number: CN-VALIDUS PHARMACEUTICALS LLC-CN-2019VAL000155

PATIENT

DRUGS (3)
  1. CALCIUM CARBONATE. [Concomitant]
     Active Substance: CALCIUM CARBONATE
     Indication: PRODUCT USED FOR UNKNOWN INDICATION
     Dosage: UNK
  2. LANTHANUM CARBONATE. [Concomitant]
     Active Substance: LANTHANUM CARBONATE
     Indication: PRODUCT USED FOR UNKNOWN INDICATION
     Dosage: UNK
  3. ROCALTROL [Suspect]
     Active Substance: CALCITRIOL
     Indication: BLOOD PARATHYROID HORMONE INCREASED
     Dosage: UNK
     Route: 048

REACTIONS (8)
  - Vascular calcification [Unknown]
  - Ill-defined disorder [Unknown]
  - Bone deformity [Unknown]
  - Blood alkaline phosphatase increased [Unknown]
  - Parathyroid hyperplasia [Unknown]
  - Deformity thorax [Unknown]
  - Blood calcium abnormal [Unknown]
  - Extremity necrosis [Unknown]
